FAERS Safety Report 8118151-7 (Version None)
Quarter: 2012Q1

REPORT INFORMATION
  Report Type: 
  Country: None (occurrence: None)
  Receive Date: 20120131
  Receipt Date: 20120120
  Transmission Date: 20120608
  Serious: Yes (Hospitalization)
  Sender: FDA-Public Use
  Company Number: DSA_47528_2011

PATIENT
  Age: 67 Year
  Sex: Male

DRUGS (10)
  1. DILTIAZEM HYDROCHLORIDE [Suspect]
     Indication: PRODUCT USED FOR UNKNOWN INDICATION
     Dosage: DF ORAL
     Route: 048
  2. OMEPRAZOLE (OMEPRAZOLE) (20 MG, 40 MG, 40 MG) [Suspect]
     Indication: PROPHYLAXIS
     Dosage: 20 MG QD; 40 MG,QD; MONDAY, WEDNESDAY, FRIDAY AND SUNDAY)
     Dates: end: 20100101
  3. OMEPRAZOLE (OMEPRAZOLE) (20 MG, 40 MG, 40 MG) [Suspect]
     Indication: OESOPHAGITIS
     Dosage: 20 MG QD; 40 MG,QD; MONDAY, WEDNESDAY, FRIDAY AND SUNDAY)
     Dates: end: 20100101
  4. OMEPRAZOLE (OMEPRAZOLE) (20 MG, 40 MG, 40 MG) [Suspect]
     Indication: PROPHYLAXIS
     Dosage: 20 MG QD; 40 MG,QD; MONDAY, WEDNESDAY, FRIDAY AND SUNDAY)
     Dates: start: 20100101
  5. OMEPRAZOLE (OMEPRAZOLE) (20 MG, 40 MG, 40 MG) [Suspect]
     Indication: OESOPHAGITIS
     Dosage: 20 MG QD; 40 MG,QD; MONDAY, WEDNESDAY, FRIDAY AND SUNDAY)
     Dates: start: 20100101
  6. OMEPRAZOLE (OMEPRAZOLE) (20 MG, 40 MG, 40 MG) [Suspect]
     Indication: PROPHYLAXIS
     Dosage: 20 MG QD; 40 MG,QD; MONDAY, WEDNESDAY, FRIDAY AND SUNDAY)
     Dates: start: 20100101, end: 20100101
  7. OMEPRAZOLE (OMEPRAZOLE) (20 MG, 40 MG, 40 MG) [Suspect]
     Indication: OESOPHAGITIS
     Dosage: 20 MG QD; 40 MG,QD; MONDAY, WEDNESDAY, FRIDAY AND SUNDAY)
     Dates: start: 20100101, end: 20100101
  8. LOSARTAN POTASSIUM [Concomitant]
  9. FLUTICASOE PROPIONATE W/SALMETEROL [Concomitant]
  10. ASPIRIN [Concomitant]

REACTIONS (6)
  - TETANY [None]
  - MUSCULAR WEAKNESS [None]
  - HYPOCALCAEMIA [None]
  - OESOPHAGITIS [None]
  - HYPOMAGNESAEMIA [None]
  - PARAESTHESIA [None]
